FAERS Safety Report 5587120-3 (Version None)
Quarter: 2008Q1

REPORT INFORMATION
  Report Type: 
  Country: None (occurrence: None)
  Receive Date: 20080110
  Receipt Date: 20080109
  Transmission Date: 20080703
  Serious: Yes (Other)
  Sender: FDA-Public Use
  Company Number: D0055623A

PATIENT
  Age: 75 Year
  Sex: Male
  Weight: 89 kg

DRUGS (6)
  1. AVODART [Suspect]
     Indication: PROSTATE CANCER
     Dosage: 1CAP PER DAY
     Route: 048
     Dates: start: 20070101, end: 20080101
  2. ENALAPRIL MALEATE [Concomitant]
     Indication: HYPERTENSION
     Dosage: 5MG TWICE PER DAY
     Route: 048
  3. AMLODIPINE [Concomitant]
     Dosage: 10MG PER DAY
     Route: 048
  4. PLAVIX [Concomitant]
     Indication: CAROTID ARTERY STENOSIS
     Route: 065
  5. ISMO RETARD [Concomitant]
     Dosage: 40MG TWICE PER DAY
     Route: 048
  6. CORDAREX [Concomitant]
     Dosage: 200MG PER DAY
     Route: 048

REACTIONS (3)
  - HYPOKINESIA [None]
  - JOINT SWELLING [None]
  - OFF LABEL USE [None]
